FAERS Safety Report 7465336-9 (Version None)
Quarter: 2011Q2

REPORT INFORMATION
  Report Type: 
  Country: None (occurrence: None)
  Receive Date: 20110505
  Receipt Date: 20110505
  Transmission Date: 20111010
  Serious: Yes (Hospitalization)
  Sender: FDA-Public Use
  Company Number: None

PATIENT
  Age: 82 Year
  Sex: Female
  Weight: 113 kg

DRUGS (17)
  1. CEFTRIAXONE [Concomitant]
  2. TIMOLOL MALEATE [Concomitant]
  3. GUAIFENESIN W/CODIENE [Concomitant]
  4. NORTRIPTYLINE HCL [Concomitant]
  5. PANTOPRAZOLE [Concomitant]
  6. ASPIRIN [Concomitant]
  7. DOCUSATE [Concomitant]
  8. LEVOTHYROXINE SODIUM [Concomitant]
  9. ONDANSETRON [Concomitant]
  10. BAPENTIN [Concomitant]
  11. DABIGATRAN 75MG BOEHRINGER INGELHEIM [Suspect]
     Indication: CEREBROVASCULAR ACCIDENT
     Dosage: 75MG BID PO
     Route: 048
     Dates: start: 20110426, end: 20110502
  12. DABIGATRAN 75MG BOEHRINGER INGELHEIM [Suspect]
     Indication: ATRIAL FIBRILLATION
     Dosage: 75MG BID PO
     Route: 048
     Dates: start: 20110426, end: 20110502
  13. ALBUTEROL [Concomitant]
  14. MIRALAX [Concomitant]
  15. SENOOSIDES [Concomitant]
  16. ACETAMINOPHEN [Concomitant]
  17. BISACODYL [Concomitant]

REACTIONS (5)
  - RENAL FAILURE [None]
  - HAEMATOCRIT DECREASED [None]
  - CONDITION AGGRAVATED [None]
  - GASTROINTESTINAL HAEMORRHAGE [None]
  - HAEMOGLOBIN DECREASED [None]
